FAERS Safety Report 10149774 (Version 1)
Quarter: 2014Q2

REPORT INFORMATION
  Report Type: Spontaneous
  Country: TR (occurrence: None)
  Receive Date: 20140430
  Receipt Date: 20140430
  Transmission Date: 20141212
  Serious: Yes (Other)
  Sender: FDA-Public Use
  Company Number: IPC201404-000180

PATIENT
  Age: 17 Year
  Sex: Male

DRUGS (5)
  1. METFORMIN HYDDROCHLORIDE (METFORMIN HYDROCHLORIDE) (METFORMIN HYDROCHLORIDE) [Suspect]
     Indication: INSULIN RESISTANCE
  2. PREDNISONE (PREDNISONE) (PREDNISONE) [Concomitant]
  3. VINCRISTINE (VINCRISTINE) (VINCRISTINE) [Concomitant]
  4. L-ASPARAGINASE (L-ASPARAGINASE) [Concomitant]
  5. DAUNORUBICIN (DAUNORUBICIN) (DAUNORUBICIN) [Concomitant]

REACTIONS (1)
  - Haemolytic anaemia [None]
